FAERS Safety Report 23885437 (Version 1)
Quarter: 2024Q2

REPORT INFORMATION
  Report Type: Spontaneous
  Country: US (occurrence: US)
  Receive Date: 20240522
  Receipt Date: 20240522
  Transmission Date: 20240716
  Serious: No
  Sender: FDA-Public Use
  Company Number: US-TEVA-VS-3196204

PATIENT
  Age: 51 Year
  Sex: Female

DRUGS (16)
  1. COPAXONE [Suspect]
     Active Substance: GLATIRAMER ACETATE
     Indication: Multiple sclerosis
     Route: 065
  2. VUMERITY [Concomitant]
     Active Substance: DIROXIMEL FUMARATE
  3. PREGABALIN [Concomitant]
     Active Substance: PREGABALIN
  4. Rizatripta [Concomitant]
  5. TOPAMAX [Concomitant]
     Active Substance: TOPIRAMATE
  6. TOPIRAMATE [Concomitant]
     Active Substance: TOPIRAMATE
  7. XANAX [Concomitant]
     Active Substance: ALPRAZOLAM
  8. ATIVAN [Concomitant]
     Active Substance: LORAZEPAM
  9. BACLOFEN [Concomitant]
     Active Substance: BACLOFEN
  10. CAMBIA [Concomitant]
     Active Substance: DICLOFENAC POTASSIUM
  11. CELEXA [Concomitant]
     Active Substance: CITALOPRAM HYDROBROMIDE
  12. CLONAZEPAM [Concomitant]
     Active Substance: CLONAZEPAM
  13. LYRICA [Concomitant]
     Active Substance: PREGABALIN
  14. MAXALT [Concomitant]
     Active Substance: RIZATRIPTAN BENZOATE
  15. MEDROL [Concomitant]
     Active Substance: METHYLPREDNISOLONE
  16. VITAMIN D2 [Concomitant]
     Active Substance: ERGOCALCIFEROL

REACTIONS (1)
  - Drug ineffective [Unknown]
